FAERS Safety Report 23375026 (Version 8)
Quarter: 2024Q2

REPORT INFORMATION
  Report Type: Spontaneous
  Country: PT (occurrence: PT)
  Receive Date: 20240106
  Receipt Date: 20240418
  Transmission Date: 20240716
  Serious: Yes (Other)
  Sender: FDA-Public Use
  Company Number: PT-SANDOZ-SDZ2023PT073514

PATIENT
  Age: 40 Year
  Sex: Male

DRUGS (2)
  1. TADALAFIL [Suspect]
     Active Substance: TADALAFIL
     Indication: Erectile dysfunction
     Dosage: 5 MILLIGRAM
     Route: 048
     Dates: start: 20230121, end: 20240115
  2. TADALAFIL [Suspect]
     Active Substance: TADALAFIL
     Dosage: 5 MILLIGRAM
     Route: 048
     Dates: start: 20230126

REACTIONS (7)
  - Acute generalised exanthematous pustulosis [Recovered/Resolved]
  - Pyrexia [Recovered/Resolved]
  - Rash erythematous [Recovered/Resolved]
  - Pruritus [Recovered/Resolved]
  - Pustule [Recovered/Resolved]
  - Erythema [Recovered/Resolved]
  - Rash [Recovered/Resolved]

NARRATIVE: CASE EVENT DATE: 20230126
